FAERS Safety Report 18859340 (Version 1)
Quarter: 2021Q1

REPORT INFORMATION
  Report Type: Spontaneous
  Country: AF (occurrence: AF)
  Receive Date: 20210208
  Receipt Date: 20210208
  Transmission Date: 20210420
  Serious: No
  Sender: FDA-Public Use
  Company Number: None

PATIENT
  Age: 64 Year
  Sex: Male
  Weight: 136.1 kg

DRUGS (2)
  1. BAMLANIVIMAB TREATMENT UNDER EMERGENCY USE AUTHORIZATION (EUA) [Suspect]
     Active Substance: BAMLANIVIMAB
     Indication: COVID-19
     Dosage: ?          OTHER FREQUENCY:ONCE;?
     Route: 042
     Dates: start: 20210205, end: 20210205
  2. SODIUM CHLORIDE 0.9% [Concomitant]
     Active Substance: SODIUM CHLORIDE
     Dates: start: 20210205, end: 20210205

REACTIONS (1)
  - Pruritus [None]

NARRATIVE: CASE EVENT DATE: 20210205
